FAERS Safety Report 7716596-8 (Version None)
Quarter: 2011Q3

REPORT INFORMATION
  Report Type: 
  Country: None (occurrence: None)
  Receive Date: 20110829
  Receipt Date: 20110520
  Transmission Date: 20111222
  Serious: No
  Sender: FDA-Public Use
  Company Number: US-GLAXOSMITHKLINE-A0928362A

PATIENT
  Age: 64 Year
  Sex: Female

DRUGS (4)
  1. BECONASE [Suspect]
     Indication: PRODUCT USED FOR UNKNOWN INDICATION
     Dosage: 2SPR TWICE PER DAY
     Route: 045
     Dates: start: 20070701
  2. ADVAIR DISKUS 100/50 [Concomitant]
  3. BACTROBAN [Concomitant]
  4. SINGULAIR [Concomitant]

REACTIONS (2)
  - INCORRECT STORAGE OF DRUG [None]
  - DRUG INEFFECTIVE [None]
